FAERS Safety Report 6146864-5 (Version None)
Quarter: 2009Q2

REPORT INFORMATION
  Report Type: 
  Country: None (occurrence: None)
  Receive Date: 20090407
  Receipt Date: 20090407
  Transmission Date: 20091009
  Serious: Yes (Other)
  Sender: FDA-Public Use
  Company Number: US-PFIZER INC-2008001940

PATIENT
  Sex: Female

DRUGS (3)
  1. CHANTIX [Suspect]
     Dosage: UNK
  2. ALCOHOL [Suspect]
  3. PAXIL [Concomitant]

REACTIONS (4)
  - ABNORMAL DREAMS [None]
  - AGGRESSION [None]
  - HOMICIDE [None]
  - PHYSICAL ASSAULT [None]
